FAERS Safety Report 6797843-6 (Version None)
Quarter: 2010Q2

REPORT INFORMATION
  Report Type: 
  Country: None (occurrence: None)
  Receive Date: 20100623
  Receipt Date: 20100615
  Transmission Date: 20101027
  Serious: Yes (Other)
  Sender: FDA-Public Use
  Company Number: 2010SCPR001388

PATIENT
  Age: 13 Year
  Sex: Female
  Weight: 45 kg

DRUGS (2)
  1. IBUPROFEN [Suspect]
     Indication: TENDONITIS
     Dosage: 400 MG TDS, ORAL
     Route: 048
  2. ACETAMINOPHEN [Concomitant]

REACTIONS (5)
  - ABDOMINAL DISCOMFORT [None]
  - CHEST DISCOMFORT [None]
  - FEELING HOT [None]
  - HYPERHIDROSIS [None]
  - PALPITATIONS [None]
